FAERS Safety Report 23693035 (Version 1)
Quarter: 2024Q1

REPORT INFORMATION
  Report Type: Spontaneous
  Country: US (occurrence: None)
  Receive Date: 20240330
  Receipt Date: 20240330
  Transmission Date: 20240410
  Serious: No
  Sender: FDA-Public Use
  Company Number: None

PATIENT
  Age: 70 Year
  Sex: Female
  Weight: 47.25 kg

DRUGS (4)
  1. ESTRADIOL VAGINAL [Suspect]
     Active Substance: ESTRADIOL
     Indication: Atrophic vulvovaginitis
     Dosage: OTHER FREQUENCY : 3 TIME A WEEK;?
     Route: 067
     Dates: start: 20140615, end: 20240320
  2. algae-cal [Concomitant]
  3. zince [Concomitant]
  4. b vitamins [Concomitant]

REACTIONS (7)
  - Arthritis [None]
  - Gait inability [None]
  - Arthralgia [None]
  - Osteoarthritis [None]
  - Rash [None]
  - Quality of life decreased [None]
  - Scab [None]

NARRATIVE: CASE EVENT DATE: 20240320
